FAERS Safety Report 6973436-2 (Version None)
Quarter: 2010Q3

REPORT INFORMATION
  Report Type: 
  Country: None (occurrence: None)
  Receive Date: 20100909
  Receipt Date: 20100907
  Transmission Date: 20110219
  Serious: Yes (Other)
  Sender: FDA-Public Use
  Company Number: US-MERCK-1009USA00635

PATIENT
  Age: 74 Year
  Sex: Female

DRUGS (2)
  1. FOSAMAX [Suspect]
     Route: 048
  2. BONIVA [Suspect]
     Route: 065

REACTIONS (5)
  - BONE DENSITY DECREASED [None]
  - DRUG INEFFECTIVE [None]
  - HIP FRACTURE [None]
  - NECROSIS [None]
  - UPPER LIMB FRACTURE [None]
